FAERS Safety Report 4297325-X (Version None)
Quarter: 2004Q1

REPORT INFORMATION
  Report Type: 
  Country: None (occurrence: None)
  Receive Date: 20040212
  Receipt Date: 20030807
  Transmission Date: 20041129
  Serious: Yes (Hospitalization)
  Sender: FDA-Public Use
  Company Number: A03200301376

PATIENT
  Age: 92 Year
  Sex: Male

DRUGS (18)
  1. AMBIEN [Suspect]
     Indication: INSOMNIA
     Dosage: 5 MG HS - ORAL
     Route: 048
     Dates: start: 20030617, end: 20030620
  2. AVELOX - MOXIFLOXACIN HYDROCHLORIDE - TABLET - 400 MG [Suspect]
     Dosage: 400 MG QD - ORAL
     Route: 048
     Dates: start: 20030620, end: 20030620
  3. FLUOCINONIDE [Concomitant]
  4. MOMETASONE FUROATE [Concomitant]
  5. NYSTATIN/TRIAMCINOLONE [Concomitant]
  6. PROMETHAZINE [Concomitant]
  7. ACETYLSALICYLIC ACID SRT [Concomitant]
  8. LOSARTAN POTASSIUM [Concomitant]
  9. ISRADIPINE [Concomitant]
  10. TAMSULOSIN HYDROCHLORIDE [Concomitant]
  11. FOLIC ACID [Concomitant]
  12. FUROSEMIDE [Concomitant]
  13. HYDROXYZINE [Concomitant]
  14. ATORVASTATIN [Concomitant]
  15. POTASSIUM [Concomitant]
  16. FINASTERIDE [Concomitant]
  17. ACETAMINOPHEN/DIPHENHYDRAMINE [Concomitant]
  18. ROFECOXIB [Concomitant]

REACTIONS (1)
  - ANAPHYLACTIC REACTION [None]
